FAERS Safety Report 10787266 (Version 1)
Quarter: 2015Q1

REPORT INFORMATION
  Report Type: Report from Study
  Country: DE (occurrence: DE)
  Receive Date: 20150211
  Receipt Date: 20150211
  Transmission Date: 20150721
  Serious: Yes (Death, Hospitalization)
  Sender: FDA-Public Use
  Company Number: DE-ROCHE-1352478

PATIENT
  Age: 61 Year
  Sex: Female

DRUGS (14)
  1. TOCILIZUMAB [Suspect]
     Active Substance: TOCILIZUMAB
     Route: 065
     Dates: start: 20120405
  2. TOCILIZUMAB [Suspect]
     Active Substance: TOCILIZUMAB
     Route: 065
     Dates: start: 20110407
  3. TOCILIZUMAB [Suspect]
     Active Substance: TOCILIZUMAB
     Route: 065
     Dates: start: 20131004
  4. TOCILIZUMAB [Suspect]
     Active Substance: TOCILIZUMAB
     Route: 065
     Dates: start: 20101105
  5. TOCILIZUMAB [Suspect]
     Active Substance: TOCILIZUMAB
     Route: 065
     Dates: start: 20130516
  6. TOCILIZUMAB [Suspect]
     Active Substance: TOCILIZUMAB
     Route: 065
     Dates: start: 20121018
  7. TOCILIZUMAB [Suspect]
     Active Substance: TOCILIZUMAB
     Route: 065
     Dates: end: 201405
  8. METHOTREXATE [Concomitant]
     Active Substance: METHOTREXATE
     Route: 065
     Dates: start: 201310
  9. TOCILIZUMAB [Suspect]
     Active Substance: TOCILIZUMAB
     Indication: RHEUMATOID ARTHRITIS
     Route: 065
     Dates: start: 20091022
  10. METHOTREXATE [Concomitant]
     Active Substance: METHOTREXATE
     Indication: RHEUMATOID ARTHRITIS
     Route: 065
  11. TOCILIZUMAB [Suspect]
     Active Substance: TOCILIZUMAB
     Route: 065
     Dates: start: 20100114
  12. TOCILIZUMAB [Suspect]
     Active Substance: TOCILIZUMAB
     Route: 065
     Dates: start: 20100506
  13. TOCILIZUMAB [Suspect]
     Active Substance: TOCILIZUMAB
     Route: 065
     Dates: start: 20111020
  14. METHOTREXATE [Concomitant]
     Active Substance: METHOTREXATE
     Route: 065
     Dates: start: 201011

REACTIONS (3)
  - Arthrodesis [Unknown]
  - Synovectomy [Unknown]
  - Acute myocardial infarction [Fatal]

NARRATIVE: CASE EVENT DATE: 20130410
